FAERS Safety Report 5729502-2 (Version None)
Quarter: 2008Q2

REPORT INFORMATION
  Report Type: 
  Country: None (occurrence: None)
  Receive Date: 20080506
  Receipt Date: 20080427
  Transmission Date: 20081010
  Serious: Yes (Hospitalization)
  Sender: FDA-Public Use
  Company Number: US-ELI_LILLY_AND_COMPANY-US200803002441

PATIENT
  Sex: Male
  Weight: 82.54 kg

DRUGS (12)
  1. BYETTA [Suspect]
     Indication: TYPE 2 DIABETES MELLITUS
     Dosage: 5 UG, 2/D
     Route: 058
     Dates: start: 20051101, end: 20060101
  2. BYETTA [Suspect]
     Dosage: 10 UG, 2/D
     Route: 058
     Dates: start: 20060101, end: 20080201
  3. BYETTA [Suspect]
     Dosage: 10 UG, 2/D
     Route: 058
     Dates: start: 20080310, end: 20080310
  4. NOVOLOG [Concomitant]
     Indication: TYPE 2 DIABETES MELLITUS
     Dosage: UNK, 3/D
     Route: 058
     Dates: start: 20051101
  5. LANTUS [Concomitant]
     Indication: TYPE 2 DIABETES MELLITUS
     Dosage: UNK, AS NEEDED
     Route: 058
     Dates: start: 20051101
  6. COZAAR [Concomitant]
     Indication: CARDIAC DISORDER
     Dosage: 50 MG, 2/D
     Route: 048
  7. FUROSEMIDE [Concomitant]
     Indication: POLYURIA
     Dosage: 20 MG, DAILY (1/D)
     Route: 048
     Dates: end: 20070101
  8. FUROSEMIDE [Concomitant]
     Dosage: 40 MG, DAILY (1/D)
     Route: 048
     Dates: start: 20070101
  9. SOTALOL HCL [Concomitant]
     Indication: ARRHYTHMIA
     Dosage: 80 MG, DAILY (1/D)
     Route: 048
  10. PLAVIX [Concomitant]
     Indication: CARDIAC DISORDER
     Dosage: 75 MG, DAILY (1/D)
     Route: 048
  11. CRESTOR [Concomitant]
     Indication: BLOOD CHOLESTEROL
     Dosage: 10 MG, DAILY (1/D)
     Route: 048
     Dates: start: 20040101
  12. ASPIRIN [Concomitant]
     Indication: CARDIAC DISORDER
     Dosage: 81 MG, DAILY (1/D)
     Route: 048

REACTIONS (21)
  - ARRHYTHMIA [None]
  - ASTHENIA [None]
  - BLOOD GLUCOSE DECREASED [None]
  - BLOOD GLUCOSE INCREASED [None]
  - CARDIAC FAILURE CONGESTIVE [None]
  - CELLULITIS [None]
  - CONFUSIONAL STATE [None]
  - CORONARY ARTERY DISEASE [None]
  - DECREASED APPETITE [None]
  - GLYCOSYLATED HAEMOGLOBIN INCREASED [None]
  - HYPERHIDROSIS [None]
  - MALAISE [None]
  - NAUSEA [None]
  - PAIN [None]
  - PALPITATIONS [None]
  - SEPSIS [None]
  - SKIN INFECTION [None]
  - VENTRICULAR EXTRASYSTOLES [None]
  - VISUAL ACUITY REDUCED [None]
  - WEIGHT DECREASED [None]
  - WOUND INFECTION STAPHYLOCOCCAL [None]
